FAERS Safety Report 6919525-X (Version None)
Quarter: 2010Q3

REPORT INFORMATION
  Report Type: 
  Country: None (occurrence: None)
  Receive Date: 20100810
  Receipt Date: 20100810
  Transmission Date: 20110219
  Serious: Yes (Hospitalization)
  Sender: FDA-Public Use
  Company Number: None

PATIENT
  Sex: Female
  Weight: 60.6 kg

DRUGS (5)
  1. DOXORUBICIN HYDROCHLORIDE [Suspect]
     Dosage: 86 MG
  2. PREDNISONE [Suspect]
     Dosage: 350 MG
  3. RITUXIMAB (MOAB C2B8 ANTI CD20, CHIMERIC) [Suspect]
     Dosage: 645 MG
  4. VINCRISTINE SULFATE [Suspect]
     Dosage: 2 MG
  5. CYCLOPHOSPHAMIDE [Suspect]
     Dosage: 1290 MG

REACTIONS (9)
  - ABDOMINAL PAIN [None]
  - DECREASED APPETITE [None]
  - DIARRHOEA [None]
  - GRAM STAIN POSITIVE [None]
  - NAUSEA [None]
  - PROTEINURIA [None]
  - STOOL ANALYSIS ABNORMAL [None]
  - URINE LEUKOCYTE ESTERASE POSITIVE [None]
  - VOMITING [None]
